FAERS Safety Report 12781050 (Version 1)
Quarter: 2016Q3

REPORT INFORMATION
  Report Type: Other
  Country: AU (occurrence: AU)
  Receive Date: 20160926
  Receipt Date: 20160926
  Transmission Date: 20161109
  Serious: No
  Sender: FDA-Public Use
  Company Number: AU-WELLSTAT THERAPEUTICS CORPORATION-1057706

PATIENT
  Age: 58 Year
  Sex: Female
  Weight: 48 kg

DRUGS (2)
  1. CAPECITABINE. [Concomitant]
     Active Substance: CAPECITABINE
     Dates: end: 20160723
  2. PN401 [Suspect]
     Active Substance: URIDINE TRIACETATE
     Indication: TOXICITY TO VARIOUS AGENTS
     Route: 050
     Dates: start: 201607, end: 20160729

REACTIONS (9)
  - Drug intolerance [Recovered/Resolved]
  - Toxicity to various agents [None]
  - Device occlusion [None]
  - Diarrhoea [None]
  - Medication error [Recovered/Resolved]
  - Paraesthesia [None]
  - Palmar-plantar erythrodysaesthesia syndrome [None]
  - Pancytopenia [None]
  - Acute respiratory distress syndrome [None]

NARRATIVE: CASE EVENT DATE: 20160729
